FAERS Safety Report 10191252 (Version 3)
Quarter: 2014Q2

REPORT INFORMATION
  Report Type: Spontaneous
  Country: US (occurrence: US)
  Receive Date: 20140523
  Receipt Date: 20140529
  Transmission Date: 20141212
  Serious: Yes (Other)
  Sender: FDA-Public Use
  Company Number: CHPA2014US006278

PATIENT
  Age: 79 Year
  Sex: Female

DRUGS (3)
  1. VOLTAREN GEL [Suspect]
     Indication: ARTHROPATHY
     Dosage: UNK, TID
     Route: 061
     Dates: start: 2010
  2. VOLTAREN GEL [Suspect]
     Indication: OFF LABEL USE
  3. RECLAST [Concomitant]
     Indication: OSTEOPENIA
     Dosage: UNK
     Route: 065

REACTIONS (7)
  - Foot fracture [Not Recovered/Not Resolved]
  - Neuropathy peripheral [Not Recovered/Not Resolved]
  - Osteopenia [Recovering/Resolving]
  - Ulcer [Recovering/Resolving]
  - Arthropathy [Not Recovered/Not Resolved]
  - Condition aggravated [Not Recovered/Not Resolved]
  - Therapeutic response changed [Unknown]
